FAERS Safety Report 9513079 (Version 2)
Quarter: 2014Q1

REPORT INFORMATION
  Report Type: Spontaneous
  Country: US (occurrence: US)
  Receive Date: 20130910
  Receipt Date: 20140116
  Transmission Date: 20141002
  Serious: No
  Sender: FDA-Public Use
  Company Number: US-PFIZER INC-2013256048

PATIENT
  Age: 51 Year
  Sex: Male
  Weight: 106 kg

DRUGS (14)
  1. XELJANZ [Suspect]
     Indication: RHEUMATOID ARTHRITIS
     Dosage: 5 MG, 2X/DAY
     Route: 048
     Dates: start: 20130711
  2. SUPER B [Concomitant]
     Dosage: UNK
     Route: 048
  3. POTASSIUM GLUCONATE [Concomitant]
     Dosage: 595 MG, UNK
     Route: 048
  4. ATENOLOL [Concomitant]
     Dosage: 25 MG, UNK
     Route: 048
  5. HYDROCHLOROTHIAZIDE [Concomitant]
     Dosage: 12.5 MG, UNK
     Route: 048
  6. LEVOTHYROXINE [Concomitant]
     Dosage: 25 UG, UNK
     Route: 048
  7. FOLIC ACID [Concomitant]
     Dosage: 1 MG, UNK
     Route: 048
  8. METFORMIN [Concomitant]
     Dosage: 500 MG, UNK
     Route: 048
  9. CALCIUM CARBONATE/COLECALCIFEROL [Concomitant]
     Dosage: 600 UNK, UNK
     Route: 048
  10. MAGNESIUM [Concomitant]
     Dosage: 300 MG, UNK
     Route: 048
  11. VITAMIN C [Concomitant]
     Dosage: 500 MG, UNK
     Route: 048
  12. MILK THISTLE [Concomitant]
     Dosage: UNK
     Route: 048
  13. PLAQUENIL [Concomitant]
     Dosage: 200 MG, UNK
     Route: 048
  14. OXYCODONE [Concomitant]
     Dosage: 5 MG, UNK
     Route: 048

REACTIONS (6)
  - Mood swings [Unknown]
  - Mood altered [Unknown]
  - Fatigue [Unknown]
  - Hyperhidrosis [Unknown]
  - Hepatic pain [Unknown]
  - Hepatic enzyme increased [Unknown]
